FAERS Safety Report 4364080-4 (Version None)
Quarter: 2004Q2

REPORT INFORMATION
  Report Type: 
  Country: None (occurrence: None)
  Receive Date: 20040519
  Receipt Date: 20040511
  Transmission Date: 20050107
  Serious: Yes (Death, Hospitalization)
  Sender: FDA-Public Use
  Company Number: 2004AP01197

PATIENT
  Age: 64 Year
  Sex: Male

DRUGS (15)
  1. IRESSA [Suspect]
     Indication: ADENOCARCINOMA
     Dosage: 250 MG DAILY PO
     Route: 048
     Dates: start: 20031006, end: 20040224
  2. IRESSA [Suspect]
     Indication: NON-SMALL CELL LUNG CANCER
     Dosage: 250 MG DAILY PO
     Route: 048
     Dates: start: 20031006, end: 20040224
  3. OSTEN [Concomitant]
  4. NORVASC [Concomitant]
  5. TEGRETOL [Concomitant]
  6. GASTER D [Concomitant]
  7. NAIXAN [Concomitant]
  8. AMARYL [Concomitant]
  9. PANTOSIN [Concomitant]
  10. MAGNESIUM OXIDE [Concomitant]
  11. KADIAN [Concomitant]
  12. CARBOPLATIN [Concomitant]
  13. PACLITAXEL [Concomitant]
  14. VINORELBINE TARTRATE [Concomitant]
  15. GEMCITABINE [Concomitant]

REACTIONS (9)
  - BEDRIDDEN [None]
  - DISEASE PROGRESSION [None]
  - GENERAL PHYSICAL HEALTH DETERIORATION [None]
  - HYPOXIA [None]
  - METASTASES TO SPINE [None]
  - MUSCULAR WEAKNESS [None]
  - NON-SMALL CELL LUNG CANCER [None]
  - PNEUMONIA ASPIRATION [None]
  - PYREXIA [None]
